FAERS Safety Report 8582226 (Version 2)
Quarter: 2012Q4

REPORT INFORMATION
  Report Type: 
  Country: US (occurrence: US)
  Receive Date: 20120528
  Receipt Date: 20120904
  Transmission Date: 20130627
  Serious: Yes (Hospitalization, Other)
  Sender: FDA-Public Use
  Company Number: US-ELI_LILLY_AND_COMPANY-US201201001352

PATIENT
  Age: 63 Year
  Sex: Female

DRUGS (31)
  1. FORTEO [Suspect]
     Indication: OSTEOPOROSIS
     Dosage: 20 ug, qd
     Route: 058
     Dates: start: 20111207
  2. FORTEO [Suspect]
     Dosage: 20 ug, qd
     Route: 065
     Dates: start: 20120219
  3. FORTEO [Suspect]
     Dosage: UNK UNK, unknown
     Route: 065
  4. FORTEO [Suspect]
     Dosage: 20 ug, qd
     Route: 065
  5. FORTEO [Suspect]
     Dosage: 20 ug, qd
     Route: 065
  6. FENTANYL [Concomitant]
     Indication: PAIN
     Dosage: 100 ug, UNK
     Route: 062
  7. MS CONTIN [Concomitant]
     Dosage: 100 mg, bid
     Route: 048
  8. MS CONTIN [Concomitant]
     Dosage: 200 mg, bid
     Route: 048
  9. ASPIRIN [Concomitant]
     Dosage: 81 mg, each morning
     Route: 048
  10. LEVOTHYROXINE [Concomitant]
     Indication: HYPERTHYROIDISM
     Dosage: 0.25 mg, UNK
  11. LAMICTAL [Concomitant]
     Indication: STATUS EPILEPTICUS
     Dosage: 150 mg, qd
     Route: 048
  12. SIMVASTATIN [Concomitant]
  13. CARVEDILOL [Concomitant]
     Indication: HYPERTENSION
     Dosage: 6.25 mg, qd
     Route: 048
  14. OXYCODONE [Concomitant]
     Indication: PAIN
     Dosage: UNK, prn
  15. PARACETAMOL [Concomitant]
     Indication: PAIN
  16. CLONAZEPAN [Concomitant]
     Indication: MUSCLE SPASMS
     Dosage: 0.25 mg, prn
     Route: 048
  17. PHENERGAN [Concomitant]
     Indication: NAUSEA
     Dosage: UNK, prn
  18. NARCAN [Concomitant]
     Indication: HEADACHE
     Dosage: 1 UNK, prn
  19. LIDOCAINE [Concomitant]
     Indication: PAIN
     Dosage: 0.5 DF, qd
  20. ZANAFLEX [Concomitant]
     Indication: HEADACHE
     Dosage: 3 DF, monthly (1/M)
  21. DEMEROL [Concomitant]
     Dosage: 100 mg, prn
  22. VALIUM [Concomitant]
     Indication: HEADACHE
     Dosage: 10 mg, prn
     Route: 048
  23. VALIUM [Concomitant]
     Dosage: 5 mg, prn
     Route: 048
  24. CALCIUM [Concomitant]
     Dosage: 1200 mg, qd
  25. CITRACAL + D [Concomitant]
     Dosage: 1 DF, bid
  26. FERROUS SULFATE [Concomitant]
     Dosage: 325 mg, bid
     Route: 048
  27. MELATONIN [Concomitant]
     Dosage: 3 DF, each evening
     Route: 048
  28. MEPERITAB [Concomitant]
     Dosage: 200 mg, tid
     Route: 048
  29. POTASSIUM [Concomitant]
     Dosage: UNK, qd
  30. VITAMIN C [Concomitant]
     Dosage: 500 mg, bid
     Route: 048
  31. ARMOUR THYROID [Concomitant]
     Indication: HYPOTHYROIDISM
     Dosage: UNK

REACTIONS (15)
  - Femoral neck fracture [Recovering/Resolving]
  - Fall [Recovered/Resolved]
  - Clavicle fracture [Recovered/Resolved]
  - Pruritus [Unknown]
  - Injection site urticaria [Recovered/Resolved]
  - Weight decreased [Not Recovered/Not Resolved]
  - Device component issue [Unknown]
  - Fall [Recovered/Resolved]
  - Bone density decreased [Unknown]
  - Balance disorder [Unknown]
  - Pruritus generalised [Recovered/Resolved]
  - Vomiting [Recovered/Resolved]
  - Nausea [Recovered/Resolved]
  - Hypoacusis [Unknown]
  - Pain [Recovered/Resolved]
